FAERS Safety Report 13199810 (Version 1)
Quarter: 2017Q1

REPORT INFORMATION
  Report Type: Spontaneous
  Country: US (occurrence: US)
  Receive Date: 20170208
  Receipt Date: 20170208
  Transmission Date: 20170428
  Serious: Yes (Hospitalization, Other)
  Sender: FDA-Public Use
  Company Number: US-SAOL THERAPEUTICS-2017SAO00237

PATIENT
  Age: 58 Year
  Sex: Male

DRUGS (12)
  1. COMPOUNDED BACLOFEN [Suspect]
     Active Substance: BACLOFEN
     Indication: MULTIPLE SCLEROSIS
     Dosage: 368.8 ?G, \DAY
     Route: 037
     Dates: start: 20160926
  2. PAXIL [Concomitant]
     Active Substance: PAROXETINE HYDROCHLORIDE
     Dosage: UNK
     Dates: start: 20100107
  3. CLONIDINE. [Suspect]
     Active Substance: CLONIDINE
     Dosage: 155.81 ?G, \DAY
     Route: 037
     Dates: start: 20160926
  4. OXYCONTIN [Concomitant]
     Active Substance: OXYCODONE HYDROCHLORIDE
     Dosage: 40 MG, UNK
  5. OXYCODONE [Concomitant]
     Active Substance: OXYCODONE
     Dosage: 15 MG, AS NEEDED
  6. BUPIVACAINE. [Suspect]
     Active Substance: BUPIVACAINE
     Dosage: 7.376 MG, \DAY
     Route: 037
     Dates: start: 20160926
  7. CLONIDINE. [Suspect]
     Active Substance: CLONIDINE
     Dosage: 122.93 ?G, \DAY
     Route: 037
     Dates: start: 20160926
  8. COMPOUNDED BACLOFEN [Suspect]
     Active Substance: BACLOFEN
     Indication: MUSCLE SPASTICITY
     Dosage: 467.4 ?G, \DAY
     Route: 037
     Dates: start: 20160926
  9. GABAPENTIN. [Concomitant]
     Active Substance: GABAPENTIN
  10. PERCOCET [Concomitant]
     Active Substance: ACETAMINOPHEN\OXYCODONE HYDROCHLORIDE
  11. COMPOUNDED BACLOFEN [Suspect]
     Active Substance: BACLOFEN
     Dosage: 250 ?G, \DAY
     Dates: start: 20170119
  12. BUPIVACAINE. [Suspect]
     Active Substance: BUPIVACAINE
     Dosage: 9.349 MG, \DAY
     Route: 037
     Dates: start: 20160926

REACTIONS (14)
  - Muscular weakness [Unknown]
  - Device infusion issue [Not Recovered/Not Resolved]
  - Insomnia [Unknown]
  - Joint stiffness [Unknown]
  - Arthralgia [Unknown]
  - Joint swelling [Unknown]
  - Muscle spasms [Unknown]
  - Swelling [Unknown]
  - Fatigue [Unknown]
  - Myalgia [Unknown]
  - Bronchitis [Unknown]
  - Pneumonia [Unknown]
  - Depressed mood [Unknown]
  - Memory impairment [Unknown]

NARRATIVE: CASE EVENT DATE: 20170119
